FAERS Safety Report 5778545-1 (Version None)
Quarter: 2008Q2

REPORT INFORMATION
  Report Type: 
  Country: None (occurrence: None)
  Receive Date: 20080618
  Receipt Date: 20071220
  Transmission Date: 20081010
  Serious: No
  Sender: FDA-Public Use
  Company Number: 07H-163-0313618-00

PATIENT
  Sex: Male
  Weight: 59.8748 kg

DRUGS (3)
  1. PANHEPRIN [Suspect]
     Dosage: 3 ML, PRN, INTRAVENOUS
     Route: 042
     Dates: start: 20071127, end: 20071206
  2. SALINE FLUSH (SODIUM CHLORIDE) [Concomitant]
  3. TOBRAMYCIN [Concomitant]

REACTIONS (1)
  - PYREXIA [None]
